FAERS Safety Report 4293550-2 (Version None)
Quarter: 2004Q1

REPORT INFORMATION
  Report Type: 
  Country: None (occurrence: None)
  Receive Date: 20040210
  Receipt Date: 20040128
  Transmission Date: 20041129
  Serious: No
  Sender: FDA-Public Use
  Company Number: 04P-020-0249315-00

PATIENT
  Age: 54 Year
  Sex: Female
  Weight: 80 kg

DRUGS (2)
  1. MERIDIA [Suspect]
     Dosage: 10 MG, 1 IN 1 D, ORAL
     Route: 048
     Dates: start: 20030601, end: 20031101
  2. RAMIPRIL [Concomitant]

REACTIONS (2)
  - BREAST MASS [None]
  - BREAST MICROCALCIFICATION [None]
